FAERS Safety Report 7903770-0 (Version None)
Quarter: 2011Q4

REPORT INFORMATION
  Report Type: 
  Country: None (occurrence: None)
  Receive Date: 20111109
  Receipt Date: 20111101
  Transmission Date: 20120403
  Serious: Yes (Other)
  Sender: FDA-Public Use
  Company Number: US-JNJFOC-20111100570

PATIENT
  Sex: Female
  Weight: 58.97 kg

DRUGS (2)
  1. REMICADE [Suspect]
     Indication: CROHN'S DISEASE
     Route: 042
     Dates: start: 20080101
  2. ASMANEX TWISTHALER [Concomitant]
     Indication: ASTHMA
     Route: 048

REACTIONS (9)
  - HEADACHE [None]
  - LOSS OF CONSCIOUSNESS [None]
  - MIGRAINE [None]
  - PSORIASIS [None]
  - ANXIETY [None]
  - DEVELOPMENTAL DELAY [None]
  - ASTHMA [None]
  - INSOMNIA [None]
  - BALANCE DISORDER [None]
